FAERS Safety Report 15114424 (Version 1)
Quarter: 2018Q3

REPORT INFORMATION
  Report Type: Report from Study
  Country: US (occurrence: US)
  Receive Date: 20180706
  Receipt Date: 20180706
  Transmission Date: 20181010
  Serious: Yes (Other)
  Sender: FDA-Public Use
  Company Number: US-BAYER-2018-123918

PATIENT
  Age: 84 Year
  Sex: Male

DRUGS (3)
  1. ASPIRIN. [Suspect]
     Active Substance: ASPIRIN
     Dosage: UNK
  2. ABCIXIMAB [Concomitant]
     Active Substance: ABCIXIMAB
     Dosage: 4 MG, UNK
     Route: 042
  3. HEPARIN [Concomitant]
     Active Substance: HEPARIN SODIUM
     Dosage: 4.5 U, UNK

REACTIONS (1)
  - Haemorrhage [None]
